FAERS Safety Report 16038016 (Version 2)
Quarter: 2019Q1

REPORT INFORMATION
  Report Type: Spontaneous
  Country: US (occurrence: US)
  Receive Date: 20190305
  Receipt Date: 20190321
  Transmission Date: 20190418
  Serious: Yes (Other)
  Sender: FDA-Public Use
  Company Number: US-AKORN PHARMACEUTICALS-2019AKN00358

PATIENT
  Age: 18 Year
  Sex: Male
  Weight: 71.66 kg

DRUGS (4)
  1. GUANFACINE. [Concomitant]
     Active Substance: GUANFACINE
     Dosage: 1 MG, 1X/DAY
  2. MYORISAN [Suspect]
     Active Substance: ISOTRETINOIN
     Indication: ACNE
     Dosage: 30 MG, 2X/DAY
     Route: 048
     Dates: start: 20190121, end: 20190212
  3. TRETINOIN. [Concomitant]
     Active Substance: TRETINOIN
     Dosage: UNK UNK, 1X/DAY AT NIGHT
     Dates: end: 20190218
  4. BUPROPION. [Concomitant]
     Active Substance: BUPROPION
     Dosage: UNK UNK, 1X/DAY

REACTIONS (4)
  - Agitation [Recovering/Resolving]
  - Mood altered [Recovering/Resolving]
  - Depression [Recovering/Resolving]
  - Irritability [Recovering/Resolving]

NARRATIVE: CASE EVENT DATE: 2019
